FAERS Safety Report 19207335 (Version 1)
Quarter: 2021Q2

REPORT INFORMATION
  Report Type: Spontaneous
  Country: CA (occurrence: CA)
  Receive Date: 20210503
  Receipt Date: 20210503
  Transmission Date: 20210717
  Serious: Yes (Death)
  Sender: FDA-Public Use
  Company Number: NVSC2021CA090632

PATIENT

DRUGS (95)
  1. FOLIC ACID. [Suspect]
     Active Substance: FOLIC ACID
     Dosage: MATERNAL DOSE: UNKNOWN
     Route: 064
  2. LEFLUNOMIDE. [Suspect]
     Active Substance: LEFLUNOMIDE
     Indication: PRODUCT USED FOR UNKNOWN INDICATION
     Dosage: MATERNAL DOSE: UNKNOWN
     Route: 064
  3. METHOTREXATE. [Suspect]
     Active Substance: METHOTREXATE
     Indication: FOETAL EXPOSURE DURING PREGNANCY
     Dosage: MATERNAL DOSE: 25.0 MILLIGRAM
     Route: 064
  4. SULFASALAZINE. [Suspect]
     Active Substance: SULFASALAZINE
     Dosage: MATERNAL DOSE: 1000.0 MILLIGRA
     Route: 064
  5. ARAVA [Suspect]
     Active Substance: LEFLUNOMIDE
     Dosage: MATERNAL DOSE: MATERNAL DOSE: UNKNOWN
     Route: 064
  6. CIMZIA [Suspect]
     Active Substance: CERTOLIZUMAB PEGOL
     Dosage: MATERNAL DOSE: UNKNOWN,  SOLUTION FOR INJECTION IN PRE?FILLED SYRINGE
     Route: 064
  7. GOLIMUMAB [Suspect]
     Active Substance: GOLIMUMAB
     Indication: FOETAL EXPOSURE DURING PREGNANCY
     Dosage: MATERNAL DOSE: UNKNOWN
     Route: 064
  8. OTEZLA [Suspect]
     Active Substance: APREMILAST
     Dosage: MATERNAL DOSE: UNKNOWN
     Route: 064
  9. PHTHALYLSULFATHIAZOLE [Suspect]
     Active Substance: PHTHALYLSULFATHIAZOLE
     Dosage: MATERNAL DOSE: UNKNOWN
     Route: 064
  10. REMICADE [Suspect]
     Active Substance: INFLIXIMAB
     Indication: FOETAL EXPOSURE DURING PREGNANCY
     Dosage: MATERNAL DOSE: UNKNOWN
     Route: 064
  11. SALAZOPYRIN [Concomitant]
     Active Substance: SULFASALAZINE
     Indication: FOETAL EXPOSURE DURING PREGNANCY
     Dosage: MATERNAL DOSE: UNKNOWN
     Route: 064
  12. RITUXIMAB. [Suspect]
     Active Substance: RITUXIMAB
     Indication: FOETAL EXPOSURE DURING PREGNANCY
     Dosage: MATERNAL DOSE: UNKNOWN
     Route: 064
  13. CETIRIZINE [Suspect]
     Active Substance: CETIRIZINE HYDROCHLORIDE
     Indication: FOETAL EXPOSURE DURING PREGNANCY
     Dosage: MATERNAL DOSE: UNKNOWN
     Route: 064
  14. HYDROXYCHLOROQUINE [Suspect]
     Active Substance: HYDROXYCHLOROQUINE
     Indication: FOETAL EXPOSURE DURING PREGNANCY
     Dosage: MATERNAL DOSE: 400.0 MILLIGRAM, QD
     Route: 064
  15. HYDROXYCHLOROQUINE [Suspect]
     Active Substance: HYDROXYCHLOROQUINE
     Dosage: MATERNAL DOSE: 400.0 MILLIGRAM, QD
     Route: 064
  16. HYDROXYCHLOROQUINE [Suspect]
     Active Substance: HYDROXYCHLOROQUINE
     Dosage: MATERNAL DOSE: 400.0 MILLIGRAM
     Route: 064
  17. PREDNISONE. [Suspect]
     Active Substance: PREDNISONE
     Dosage: MATERNAL DOSE: UNKNOWN
     Route: 064
  18. PREDNISONE. [Suspect]
     Active Substance: PREDNISONE
     Dosage: MATERNAL DOSE: UNKNOWN
     Route: 064
  19. ARAVA [Suspect]
     Active Substance: LEFLUNOMIDE
     Indication: FOETAL EXPOSURE DURING PREGNANCY
     Dosage: MATERNAL DOSE: 20.0 MILLIGRAM
     Route: 064
  20. PHTHALYLSULFATHIAZOLE [Suspect]
     Active Substance: PHTHALYLSULFATHIAZOLE
     Indication: FOETAL EXPOSURE DURING PREGNANCY
     Dosage: MATERNAL DOSE: UNKNOWN
     Route: 064
  21. REMICADE [Suspect]
     Active Substance: INFLIXIMAB
     Dosage: MATERNAL DOSE: UNKNOWN, SOLUTION FOR INFUSION
     Route: 064
  22. TOFACITINIB CITRATE [Concomitant]
     Active Substance: TOFACITINIB CITRATE
     Indication: FOETAL EXPOSURE DURING PREGNANCY
     Dosage: MATERNAL DOSE: 5.0 MILLIGRAM, 1 EVERY 1 WEEK
     Route: 064
  23. CETIRIZINE [Suspect]
     Active Substance: CETIRIZINE HYDROCHLORIDE
     Dosage: MATERNAL DOSE: UNKNOWN
     Route: 064
  24. DIPHENHYDRAMINE. [Suspect]
     Active Substance: DIPHENHYDRAMINE
     Indication: FOETAL EXPOSURE DURING PREGNANCY
     Dosage: MATERNAL DOSE: UNKNOWN
     Route: 064
  25. HYDROXYCHLOROQUINE [Suspect]
     Active Substance: HYDROXYCHLOROQUINE
     Dosage: MATERNAL DOSE: 400.0 MILLIGRAM, QD
     Route: 064
  26. SULFASALAZINE. [Suspect]
     Active Substance: SULFASALAZINE
     Dosage: MATERNAL DOSE: 500.0 MILLIGRAM
     Route: 064
  27. CIMZIA [Suspect]
     Active Substance: CERTOLIZUMAB PEGOL
     Indication: FOETAL EXPOSURE DURING PREGNANCY
     Dosage: MATERNAL DOSE: UNKNOWN
     Route: 064
  28. ENBREL [Suspect]
     Active Substance: ETANERCEPT
     Indication: FOETAL EXPOSURE DURING PREGNANCY
     Dosage: MATERNAL DOSE: 50.0 MILLIGRAM
     Route: 064
  29. ORENCIA [Suspect]
     Active Substance: ABATACEPT
     Indication: FOETAL EXPOSURE DURING PREGNANCY
     Dosage: MATERNAL DOSE: UNKNOWN
     Route: 064
  30. IBUPROFEN. [Concomitant]
     Active Substance: IBUPROFEN
     Indication: FOETAL EXPOSURE DURING PREGNANCY
     Dosage: MATERNAL DOSE: UNKNOWN
     Route: 064
  31. CORTISONE [Suspect]
     Active Substance: CORTISONE
     Dosage: MATERNAL DOSE: UNKNOWN, TABLET
     Route: 064
  32. PREDNISONE. [Suspect]
     Active Substance: PREDNISONE
     Indication: FOETAL EXPOSURE DURING PREGNANCY
     Dosage: MATERNAL DOSE: 40.0 MILLIGRAM
     Route: 064
  33. APO?PREDNISONE [Suspect]
     Active Substance: PREDNISONE
     Indication: FOETAL EXPOSURE DURING PREGNANCY
     Dosage: MATERNAL DOSE: 40.0 MILLIGRAM
     Route: 064
  34. FOSAMAX [Suspect]
     Active Substance: ALENDRONATE SODIUM
     Indication: FOETAL EXPOSURE DURING PREGNANCY
     Dosage: MATERNAL DOSE: UNKNOWN
     Route: 064
  35. HUMIRA [Suspect]
     Active Substance: ADALIMUMAB
     Indication: FOETAL EXPOSURE DURING PREGNANCY
     Dosage: MATERNAL DOSE: 4.0 MILLIGRAM
     Route: 064
  36. HUMIRA [Suspect]
     Active Substance: ADALIMUMAB
     Dosage: MATERNAL DOSE: 40.0 MILLIGRAM, SOLUTION
     Route: 064
  37. OTEZLA [Suspect]
     Active Substance: APREMILAST
     Dosage: MATERNAL DOSE: 3.0 MILLIGRAM 2 EVERY 1 DAYS
     Route: 064
  38. STELARA [Suspect]
     Active Substance: USTEKINUMAB
     Indication: FOETAL EXPOSURE DURING PREGNANCY
     Dosage: MATERNAL DOSE: UNKNOWN, SOLUTION
     Route: 064
  39. WINPRED [Suspect]
     Active Substance: PREDNISONE
     Indication: FOETAL EXPOSURE DURING PREGNANCY
     Dosage: MATERNAL DOSE: UNKNOWN
     Route: 064
  40. VITAMIN D3 [Concomitant]
     Active Substance: CHOLECALCIFEROL
     Indication: FOETAL EXPOSURE DURING PREGNANCY
     Dosage: MATERNAL DOSE: UNKNOWN
     Route: 064
  41. ERELZI [Suspect]
     Active Substance: ETANERCEPT-SZZS
     Indication: FOETAL EXPOSURE DURING PREGNANCY
     Dosage: MATERNAL DOSE: UNKNOWN
     Route: 064
  42. FOLIC ACID. [Suspect]
     Active Substance: FOLIC ACID
     Dosage: MATERNAL DOSE: 5.0 MILLIGRAM
     Route: 064
  43. FOLIC ACID. [Suspect]
     Active Substance: FOLIC ACID
     Dosage: MATERNAL DOSE: 1.0 MILLIGRAM
     Route: 064
  44. FOLIC ACID. [Suspect]
     Active Substance: FOLIC ACID
     Dosage: MATERNAL DOSE: 5.0 MILLIGRAM
     Route: 064
  45. RITUXIMAB. [Suspect]
     Active Substance: RITUXIMAB
     Dosage: MATERNAL DOSE: UNKNOWN
     Route: 064
  46. CORTISONE [Suspect]
     Active Substance: CORTISONE
     Indication: FOETAL EXPOSURE DURING PREGNANCY
     Dosage: MATERNAL DOSE: UNKNOWN, TABLET
     Route: 064
  47. CORTISONE [Suspect]
     Active Substance: CORTISONE
     Dosage: MATERNAL DOSE: 25.0 MILLIGRAM, OINTMENT
     Route: 064
  48. CORTISONE [Suspect]
     Active Substance: CORTISONE
     Dosage: MATERNAL DOSE: UNKNOWN
     Route: 064
  49. DESOXYMETHASONE [Suspect]
     Active Substance: DESOXIMETASONE
     Dosage: MATERNAL DOSE: UNKNOWN
     Route: 064
  50. DESOXYMETHASONE [Suspect]
     Active Substance: DESOXIMETASONE
     Dosage: MATERNAL DOSE: UNKNOWN
     Route: 064
  51. FOSAMAX [Suspect]
     Active Substance: ALENDRONATE SODIUM
     Dosage: MATERNAL DOSE: UNKNOWN
     Route: 064
  52. PSEUDOEPHEDRINE HYDROCHLORIDE. [Suspect]
     Active Substance: PSEUDOEPHEDRINE HYDROCHLORIDE
     Indication: FOETAL EXPOSURE DURING PREGNANCY
     Dosage: MATERNAL DOSE: UNKNOWN
     Route: 064
  53. XELJANZ [Suspect]
     Active Substance: TOFACITINIB CITRATE
     Dosage: MATERNAL DOSE: 5.0 MILLIGRAM
     Route: 064
  54. XELJANZ [Suspect]
     Active Substance: TOFACITINIB CITRATE
     Dosage: MATERNAL DOSE: UNKNOWN
     Route: 064
  55. TOCILIZUMAB. [Suspect]
     Active Substance: TOCILIZUMAB
     Indication: FOETAL EXPOSURE DURING PREGNANCY
     Dosage: MATERNAL DOSE: UNKNOWN
     Route: 064
  56. TOCILIZUMAB. [Suspect]
     Active Substance: TOCILIZUMAB
     Dosage: MATERNAL DOSE: UNKNOWN
     Route: 064
  57. LISINOPRIL. [Concomitant]
     Active Substance: LISINOPRIL
     Indication: FOETAL EXPOSURE DURING PREGNANCY
     Dosage: MATERNAL DOSE: UNKNOWN
     Route: 064
  58. FOLIC ACID. [Suspect]
     Active Substance: FOLIC ACID
     Dosage: MATERNAL DOSE: 25.0 MILLIGRAM
     Route: 064
  59. METHOTREXATE. [Suspect]
     Active Substance: METHOTREXATE
     Dosage: MATERNAL DOSE: UNKNOWN
     Route: 064
  60. ALENDRONIC ACID [Suspect]
     Active Substance: ALENDRONIC ACID
     Dosage: MATERNAL DOSE: UNKNOWN
     Route: 064
  61. CORTISONE [Suspect]
     Active Substance: CORTISONE
     Dosage: MATERNAL DOSE: 25.0 MILLIGRAM, OINTMENT
     Route: 064
  62. HYDROXYCHLOROQUINE [Suspect]
     Active Substance: HYDROXYCHLOROQUINE
     Dosage: MATERNAL DOSE: UNKNOWN
     Route: 064
  63. ACETAMINOPHEN. [Suspect]
     Active Substance: ACETAMINOPHEN
     Indication: FOETAL EXPOSURE DURING PREGNANCY
     Dosage: MATERNAL DOSE: UNKNOWN
     Route: 064
  64. ORENCIA [Suspect]
     Active Substance: ABATACEPT
     Dosage: MATERNAL DOSE: UNKNOWN
     Route: 064
  65. OTEZLA [Suspect]
     Active Substance: APREMILAST
     Dosage: MATERNAL DOSE: 3.0 MILLIGRAM 2 EVERY 1 DAYS
     Route: 064
  66. METHOTREXATE. [Suspect]
     Active Substance: METHOTREXATE
     Dosage: MATERNAL DOSE: 25.0 MILLIGRAM
     Route: 064
  67. ALENDRONIC ACID [Suspect]
     Active Substance: ALENDRONIC ACID
     Indication: FOETAL EXPOSURE DURING PREGNANCY
     Dosage: MATERNAL DOSE: UNKNOWN
     Route: 064
  68. CORTISONE [Suspect]
     Active Substance: CORTISONE
     Dosage: MATERNAL DOSE: 25.0 MILLIGRAM, OINTMENT
     Route: 064
  69. CETIRIZINE [Suspect]
     Active Substance: CETIRIZINE HYDROCHLORIDE
     Dosage: MATERNAL DOSE: 10.0 MILLIGRAM
     Route: 064
  70. CETIRIZINE [Suspect]
     Active Substance: CETIRIZINE HYDROCHLORIDE
     Dosage: MATERNAL DOSE: UNKNOWN
     Route: 064
  71. DESOXYMETHASONE [Suspect]
     Active Substance: DESOXIMETASONE
     Dosage: MATERNAL DOSE: UNKNOWN
     Route: 064
  72. HYDROXYCHLOROQUINE [Suspect]
     Active Substance: HYDROXYCHLOROQUINE
     Dosage: MATERNAL DOSE: 400.0 MILLIGRAM, QD
     Route: 064
  73. HYDROXYCHLOROQUINE [Suspect]
     Active Substance: HYDROXYCHLOROQUINE
     Dosage: MATERNAL DOSE: 400.0 MILLIGRAM, QD
     Route: 064
  74. HYDROXYCHLOROQUINE [Suspect]
     Active Substance: HYDROXYCHLOROQUINE
     Dosage: MATERNAL DOSE: 400.0 MILLIGRAM
     Route: 064
  75. SULFASALAZINE. [Suspect]
     Active Substance: SULFASALAZINE
     Indication: FOETAL EXPOSURE DURING PREGNANCY
     Dosage: MATERNAL DOSE: 1000.0 MILLIGRA
     Route: 064
  76. SULFASALAZINE. [Suspect]
     Active Substance: SULFASALAZINE
     Dosage: MATERNAL DOSE: 500.0 MILLIGRAM
     Route: 064
  77. ACTEMRA [Suspect]
     Active Substance: TOCILIZUMAB
     Indication: FOETAL EXPOSURE DURING PREGNANCY
     Dosage: MATERNAL DOSE: UNKNOWN
     Route: 064
  78. OTEZLA [Suspect]
     Active Substance: APREMILAST
     Indication: FOETAL EXPOSURE DURING PREGNANCY
     Dosage: MATERNAL DOSE: UNKNOWN
     Route: 064
  79. SOLU?MEDROL [Suspect]
     Active Substance: METHYLPREDNISOLONE SODIUM SUCCINATE
     Indication: FOETAL EXPOSURE DURING PREGNANCY
     Dosage: MATERNAL DOSE: UNKNOWN
     Route: 064
  80. CODEINE [Concomitant]
     Active Substance: CODEINE
     Indication: FOETAL EXPOSURE DURING PREGNANCY
     Dosage: MATERNAL DOSE: UNKNOWN
     Route: 064
  81. ADALIMUMAB [Suspect]
     Active Substance: ADALIMUMAB
     Indication: FOETAL EXPOSURE DURING PREGNANCY
     Dosage: MATERNAL DOSE: 40.0 MILLIGRAM
     Route: 064
  82. FOLIC ACID. [Suspect]
     Active Substance: FOLIC ACID
     Indication: FOETAL EXPOSURE DURING PREGNANCY
     Dosage: MATERNAL DOSE: 1.0 MILLIGRAM
     Route: 064
  83. DICLOFENAC [Suspect]
     Active Substance: DICLOFENAC
     Indication: FOETAL EXPOSURE DURING PREGNANCY
     Dosage: MATERNAL DOSE: UNKNOWN
     Route: 065
  84. DICLOFENAC [Suspect]
     Active Substance: DICLOFENAC
     Dosage: MATERNAL DOSE: 50.0 MILLIGRAM
     Route: 065
  85. RITUXIMAB. [Suspect]
     Active Substance: RITUXIMAB
     Dosage: MATERNAL DOSE: UNKNOWN
     Route: 064
  86. ALENDRONIC ACID [Suspect]
     Active Substance: ALENDRONIC ACID
     Dosage: MATERNAL DOSE: UNKNOWN
     Route: 064
  87. ALENDRONIC ACID [Suspect]
     Active Substance: ALENDRONIC ACID
     Dosage: MATERNAL DOSE: UNKNOWN
     Route: 064
  88. DESOXYMETHASONE [Suspect]
     Active Substance: DESOXIMETASONE
     Indication: FOETAL EXPOSURE DURING PREGNANCY
     Dosage: MATERNAL DOSE: UNKNOWN
     Route: 064
  89. PREDNISONE. [Suspect]
     Active Substance: PREDNISONE
     Dosage: MATERNAL DOSE: 25.0 MILLIGRAM
     Route: 064
  90. REMICADE [Suspect]
     Active Substance: INFLIXIMAB
     Dosage: MATERNAL DOSE: UNKNOWN, SOLUTION FOR INFUSION
     Route: 064
  91. REMICADE [Suspect]
     Active Substance: INFLIXIMAB
     Dosage: MATERNAL DOSE: UNKNOWN, POWDER FOR INJECTION
     Route: 064
  92. SIMPONI [Suspect]
     Active Substance: GOLIMUMAB
     Indication: FOETAL EXPOSURE DURING PREGNANCY
     Dosage: MATERNAL DOSE: 50.0 MILLIGRAM
     Route: 064
  93. SIMPONI [Suspect]
     Active Substance: GOLIMUMAB
     Dosage: MATERNAL DOSE: UNKNOWN
     Route: 064
  94. XELJANZ [Suspect]
     Active Substance: TOFACITINIB CITRATE
     Indication: FOETAL EXPOSURE DURING PREGNANCY
     Dosage: MATERNAL DOSE: 5.0 MILLIGRAM, 1 EVERY 1 DAYS
     Route: 064
  95. CAFFEINE. [Concomitant]
     Active Substance: CAFFEINE
     Indication: FOETAL EXPOSURE DURING PREGNANCY
     Dosage: MATERNAL DOSE: UNKNOWN
     Route: 064

REACTIONS (2)
  - Death neonatal [Fatal]
  - Maternal exposure during pregnancy [Fatal]
